FAERS Safety Report 8795278 (Version 1)
Quarter: 2012Q4

REPORT INFORMATION
  Report Type: 
  Country: CA (occurrence: CA)
  Receive Date: 20120917
  Receipt Date: 20120917
  Transmission Date: 20130627
  Serious: Yes (Hospitalization)
  Sender: FDA-Public Use
  Company Number: CA-ROCHE-1128773

PATIENT
  Age: 52 Year
  Sex: Male
  Weight: 93 kg

DRUGS (8)
  1. PEGASYS [Suspect]
     Indication: PRODUCT USED FOR UNKNOWN INDICATION
     Route: 065
  2. PEGASYS [Suspect]
     Route: 058
  3. RIBAVIRIN [Suspect]
     Indication: PRODUCT USED FOR UNKNOWN INDICATION
     Route: 065
  4. RIBAVIRIN [Suspect]
     Route: 065
  5. RIBAVIRIN [Suspect]
     Route: 065
  6. CYCLOSPORINE [Suspect]
     Indication: PRODUCT USED FOR UNKNOWN INDICATION
     Route: 065
  7. CYCLOSPORINE [Suspect]
     Route: 048
  8. CYCLOSPORINE [Suspect]
     Route: 048

REACTIONS (4)
  - Encephalopathy [Recovered/Resolved]
  - Hepatic encephalopathy [Recovered/Resolved]
  - Pancytopenia [Recovered/Resolved]
  - Pollakiuria [Recovered/Resolved]
